FAERS Safety Report 10545018 (Version 3)
Quarter: 2017Q2

REPORT INFORMATION
  Report Type: Spontaneous
  Country: US (occurrence: US)
  Receive Date: 20141027
  Receipt Date: 20170517
  Transmission Date: 20170829
  Serious: Yes (Hospitalization)
  Sender: FDA-Public Use
  Company Number: US-BAYER-2014-155856

PATIENT
  Age: 27 Year
  Sex: Female

DRUGS (7)
  1. MIRENA [Suspect]
     Active Substance: LEVONORGESTREL
     Indication: CONTRACEPTION
     Dosage: 20 MCG/24HR, CONT
     Route: 015
     Dates: start: 20080625, end: 20130306
  2. AMOXICILLIN. [Concomitant]
     Active Substance: AMOXICILLIN
     Indication: SINUSITIS
     Dosage: UNK
     Route: 048
     Dates: start: 20130102
  3. PROAIR HFA [Concomitant]
     Active Substance: ALBUTEROL SULFATE
     Dosage: AS NEEDED
     Route: 045
  4. WELLBUTRIN [Concomitant]
     Active Substance: BUPROPION HYDROCHLORIDE
     Dosage: 150 MG, BID
     Route: 048
  5. ADVIL [Concomitant]
     Active Substance: IBUPROFEN
  6. FLONASE [Concomitant]
     Active Substance: FLUTICASONE PROPIONATE
     Dosage: 2 SQUIRTS TO NARES DAILY
     Route: 045
  7. SOMA [Concomitant]
     Active Substance: CARISOPRODOL
     Dosage: 350 MG, HS
     Route: 048

REACTIONS (15)
  - Oophoritis [None]
  - Device difficult to use [None]
  - Pain [None]
  - Libido decreased [None]
  - Dysmenorrhoea [None]
  - Abdominal pain upper [None]
  - Injury [None]
  - Dyspareunia [None]
  - Device dislocation [None]
  - Pelvic pain [None]
  - Infection [None]
  - Device issue [None]
  - Pelvic inflammatory disease [None]
  - Embedded device [None]
  - Infertility female [None]

NARRATIVE: CASE EVENT DATE: 20130220
